FAERS Safety Report 8313259-5 (Version None)
Quarter: 2012Q2

REPORT INFORMATION
  Report Type: 
  Country: None (occurrence: None)
  Receive Date: 20120424
  Receipt Date: 20120413
  Transmission Date: 20120825
  Serious: Yes (Other)
  Sender: FDA-Public Use
  Company Number: 2008JP004128

PATIENT
  Age: 36 Year
  Sex: Female
  Weight: 52 kg

DRUGS (44)
  1. FUNGIZONE [Concomitant]
  2. FAMOTIDINE [Concomitant]
  3. ALFAROL (ALFACALCIDOL) [Concomitant]
  4. COLDRIN (CLOFEDANOL HYDROCHLORIDE) [Concomitant]
  5. HIRUDOID (HEPARINOID) [Concomitant]
  6. LEVOFLOXACIN [Concomitant]
  7. PREDNISOLONE [Suspect]
     Indication: LUPUS NEPHRITIS
     Dosage: SEE IMAGE
     Route: 048
     Dates: start: 20080208, end: 20080221
  8. PREDNISOLONE [Suspect]
     Indication: LUPUS NEPHRITIS
     Dosage: SEE IMAGE
     Route: 048
     Dates: start: 20080925, end: 20081022
  9. PREDNISOLONE [Suspect]
     Indication: LUPUS NEPHRITIS
     Dosage: SEE IMAGE
     Route: 048
     Dates: start: 20100128, end: 20100407
  10. PREDNISOLONE [Suspect]
     Indication: LUPUS NEPHRITIS
     Dosage: SEE IMAGE
     Route: 048
     Dates: start: 20080222, end: 20080312
  11. PREDNISOLONE [Suspect]
     Indication: LUPUS NEPHRITIS
     Dosage: SEE IMAGE
     Route: 048
     Dates: start: 20080607, end: 20080730
  12. PREDNISOLONE [Suspect]
     Indication: LUPUS NEPHRITIS
     Dosage: SEE IMAGE
     Route: 048
     Dates: start: 20090122, end: 20090318
  13. PREDNISOLONE [Suspect]
     Indication: LUPUS NEPHRITIS
     Dosage: SEE IMAGE
     Route: 048
     Dates: start: 20090521, end: 20090729
  14. PREDNISOLONE [Suspect]
     Indication: LUPUS NEPHRITIS
     Dosage: SEE IMAGE
     Route: 048
     Dates: start: 20100617, end: 20100811
  15. PREDNISOLONE [Suspect]
     Indication: LUPUS NEPHRITIS
     Dosage: SEE IMAGE
     Route: 048
     Dates: start: 20080111, end: 20080124
  16. PREDNISOLONE [Suspect]
     Indication: LUPUS NEPHRITIS
     Dosage: SEE IMAGE
     Route: 048
     Dates: start: 20080731, end: 20080924
  17. PREDNISOLONE [Suspect]
     Indication: LUPUS NEPHRITIS
     Dosage: SEE IMAGE
     Route: 048
     Dates: start: 20090319, end: 20090520
  18. PREDNISOLONE [Suspect]
     Indication: LUPUS NEPHRITIS
     Dosage: SEE IMAGE
     Route: 048
     Dates: start: 20080410, end: 20080507
  19. PREDNISOLONE [Suspect]
     Indication: LUPUS NEPHRITIS
     Dosage: SEE IMAGE
     Route: 048
     Dates: start: 20091126, end: 20100127
  20. PREDNISOLONE [Suspect]
     Indication: LUPUS NEPHRITIS
     Dosage: SEE IMAGE
     Route: 048
     Dates: start: 20071214, end: 20080110
  21. PREDNISOLONE [Suspect]
     Indication: LUPUS NEPHRITIS
     Dosage: SEE IMAGE
     Route: 048
     Dates: start: 20090730, end: 20090929
  22. PREDNISOLONE [Suspect]
     Indication: LUPUS NEPHRITIS
     Dosage: SEE IMAGE
     Route: 048
     Dates: start: 20100408, end: 20100616
  23. PREDNISOLONE [Suspect]
     Indication: LUPUS NEPHRITIS
     Dosage: SEE IMAGE
     Route: 048
     Dates: start: 20080313, end: 20080326
  24. PREDNISOLONE [Suspect]
     Indication: LUPUS NEPHRITIS
     Dosage: SEE IMAGE
     Route: 048
     Dates: start: 20080508, end: 20080606
  25. PREDNISOLONE [Suspect]
     Indication: LUPUS NEPHRITIS
     Dosage: SEE IMAGE
     Route: 048
     Dates: start: 20081023, end: 20090121
  26. PREDNISOLONE [Suspect]
     Indication: LUPUS NEPHRITIS
     Dosage: SEE IMAGE
     Route: 048
     Dates: start: 20080125, end: 20080207
  27. PREDNISOLONE [Suspect]
     Indication: LUPUS NEPHRITIS
     Dosage: SEE IMAGE
     Route: 048
     Dates: start: 20080327, end: 20080409
  28. PREDNISOLONE [Suspect]
     Indication: LUPUS NEPHRITIS
     Dosage: SEE IMAGE
     Route: 048
     Dates: start: 20090930, end: 20091125
  29. MUCODYNE (CARBOCISTEINE) [Concomitant]
  30. AZUNOL (SODIUM GUALENATE) [Concomitant]
  31. PANDEL [Concomitant]
  32. TAMIFLU [Concomitant]
  33. MARZULENE-S (AZULENE, LEVOGLUTAMIDE, SODIUM GUALENATE) [Concomitant]
  34. HYALEIN (HYALURONATE SODIUM) [Concomitant]
  35. LANSOPRAZOLE [Concomitant]
  36. FAMOTIDINE [Concomitant]
  37. BLOPRESS (CANESARTAN CILEXETIL) [Concomitant]
  38. ROXATIDINE ACETATE HCL [Concomitant]
  39. TACROLIMUS [Suspect]
     Indication: LUPUS NEPHRITIS
     Dosage: 3 MG, UNKNOWN/D, ORAL, 2MG, ORAL,
     Route: 048
     Dates: start: 20080219, end: 20110118
  40. TACROLIMUS [Suspect]
     Indication: LUPUS NEPHRITIS
     Dosage: 3 MG, UNKNOWN/D, ORAL, 2MG, ORAL,
     Route: 048
     Dates: start: 20110119
  41. TACROLIMUS [Suspect]
     Indication: LUPUS NEPHRITIS
     Dosage: 3 MG, UNKNOWN/D, ORAL, 2MG, ORAL,
     Route: 048
     Dates: start: 20080208, end: 20080218
  42. SIMVASTATIN [Concomitant]
  43. WARFARIN SODIUM [Concomitant]
  44. PETROLATUM (PETROLATUM) [Concomitant]

REACTIONS (8)
  - LYMPHOCYTE COUNT DECREASED [None]
  - ECZEMA [None]
  - ARTHRALGIA [None]
  - INFLUENZA [None]
  - OSTEONECROSIS [None]
  - IRON DEFICIENCY ANAEMIA [None]
  - CYSTITIS [None]
  - BLOOD TRIGLYCERIDES INCREASED [None]
